FAERS Safety Report 23196468 (Version 1)
Quarter: 2023Q4

REPORT INFORMATION
  Report Type: Report from Study
  Country: CA (occurrence: CA)
  Receive Date: 20231117
  Receipt Date: 20231117
  Transmission Date: 20240110
  Serious: Yes (Other)
  Sender: FDA-Public Use
  Company Number: CA-002147023-NVSC2023CA203411

PATIENT
  Age: 48 Year
  Sex: Male

DRUGS (2)
  1. TAFINLAR [Suspect]
     Active Substance: DABRAFENIB MESYLATE
     Indication: Malignant melanoma
     Dosage: 150 MG, BID
     Route: 048
     Dates: start: 20230916, end: 20231102
  2. MEKINIST [Suspect]
     Active Substance: TRAMETINIB DIMETHYL SULFOXIDE
     Indication: Malignant melanoma
     Dosage: 2 MG, QD
     Route: 048
     Dates: start: 20230916, end: 20231102

REACTIONS (15)
  - Renal failure [Not Recovered/Not Resolved]
  - Haematochezia [Not Recovered/Not Resolved]
  - Hepatic failure [Unknown]
  - Hepatitis [Unknown]
  - Palpitations [Recovered/Resolved]
  - Swelling face [Recovered/Resolved]
  - Hot flush [Recovered/Resolved]
  - Gait inability [Not Recovered/Not Resolved]
  - Insomnia [Not Recovered/Not Resolved]
  - Pain in extremity [Not Recovered/Not Resolved]
  - Rash macular [Recovered/Resolved]
  - Headache [Recovered/Resolved]
  - Pyrexia [Not Recovered/Not Resolved]
  - Dehydration [Unknown]
  - Fatigue [Recovered/Resolved]
